FAERS Safety Report 4477520-7 (Version None)
Quarter: 2004Q4

REPORT INFORMATION
  Report Type: 
  Country: None (occurrence: None)
  Receive Date: 20041018
  Receipt Date: 20040922
  Transmission Date: 20050328
  Serious: Yes (Hospitalization)
  Sender: FDA-Public Use
  Company Number: JP-GLAXOSMITHKLINE-B0346366A

PATIENT
  Age: 78 Year
  Sex: Male
  Weight: 47 kg

DRUGS (8)
  1. VALTREX [Suspect]
     Indication: HERPES ZOSTER
     Dosage: 500MG TWICE PER DAY
     Route: 048
     Dates: start: 20040913, end: 20040915
  2. VITANEURIN [Concomitant]
     Dosage: 50MG THREE TIMES PER DAY
     Route: 048
  3. PROTECADIN [Concomitant]
     Dosage: 5MG PER DAY
     Route: 048
  4. BUFFERIN [Concomitant]
     Indication: FEMORAL ARTERY OCCLUSION
     Dosage: 81MG PER DAY
     Route: 048
  5. CALTAN [Concomitant]
     Indication: HYPERTENSION
     Dosage: 500MG THREE TIMES PER DAY
     Route: 048
  6. ADALAT [Concomitant]
     Indication: HYPERTENSION
     Dosage: 10MG TWICE PER DAY
     Route: 048
  7. MINIPRESS [Concomitant]
     Indication: HYPERTENSION
     Dosage: .5MG TWICE PER DAY
     Route: 048
  8. AMLODIN [Concomitant]
     Indication: HYPERTENSION
     Dosage: 2.5MG PER DAY
     Route: 048

REACTIONS (11)
  - CONVULSIONS LOCAL [None]
  - COORDINATION ABNORMAL [None]
  - DELIRIUM [None]
  - DEPRESSED LEVEL OF CONSCIOUSNESS [None]
  - DIZZINESS [None]
  - DYSARTHRIA [None]
  - DYSSTASIA [None]
  - ENCEPHALOPATHY [None]
  - HALLUCINATION, VISUAL [None]
  - SPEECH DISORDER [None]
  - TETANY [None]
